FAERS Safety Report 4599630-6 (Version None)
Quarter: 2005Q1

REPORT INFORMATION
  Report Type: 
  Country: None (occurrence: None)
  Receive Date: 20050303
  Receipt Date: 20050303
  Transmission Date: 20050727
  Serious: Yes (Other)
  Sender: FDA-Public Use
  Company Number: None

PATIENT
  Sex: Female
  Weight: 69.4003 kg

DRUGS (3)
  1. ATENOLOL [Suspect]
     Indication: ANGINA PECTORIS
     Dosage: 25 MG DAILY
  2. ATENOLOL [Suspect]
     Indication: ARRHYTHMIA SUPRAVENTRICULAR
     Dosage: 25 MG DAILY
  3. TENORMIN [Concomitant]

REACTIONS (4)
  - BRADYCARDIA [None]
  - FATIGUE [None]
  - PALPITATIONS [None]
  - PHARMACEUTICAL PRODUCT COMPLAINT [None]
